FAERS Safety Report 5501707-5 (Version None)
Quarter: 2007Q4

REPORT INFORMATION
  Report Type: 
  Country: None (occurrence: None)
  Receive Date: 20071030
  Receipt Date: 20071025
  Transmission Date: 20080405
  Serious: Yes (Other)
  Sender: FDA-Public Use
  Company Number: JP-AVENTIS-200712851JP

PATIENT
  Age: 33 Year
  Sex: Female

DRUGS (1)
  1. TAXOTERE [Suspect]

REACTIONS (1)
  - DEMENTIA [None]
